FAERS Safety Report 5693774 (Version 3)
Quarter: 2012Q4

REPORT INFORMATION
  Report Type: Spontaneous
  Country: CA (occurrence: None)
  Receive Date: 20041201
  Receipt Date: 20121004
  Transmission Date: 20130627
  Serious: Yes (Death)
  Sender: FDA-Public Use
  Company Number: 2004US001360

PATIENT
  Age: 11 Month
  Sex: Female

DRUGS (11)
  1. PROTOPIC [Suspect]
     Indication: GRAFT VERSUS HOST DISEASE
     Dosage: TOPICAL
     Route: 061
     Dates: start: 20041016
  2. NIFEDIPINE (NIFEDIPINE) [Concomitant]
  3. PENTAMIDINE (PENTAMIDINE) [Concomitant]
  4. CYCLOSPORINE (CICLOSPORIN) [Concomitant]
  5. GANCICLOVIR SODIUM [Concomitant]
  6. CIPROFLOXACIN EXTENDED-RELEASE [Concomitant]
  7. MEROPENEM [Concomitant]
  8. AMLODIPINE [Concomitant]
  9. AMBISOME [Concomitant]
  10. VANCOMYCIN [Concomitant]
  11. PANTOPRAZOLE SODIUM [Concomitant]

REACTIONS (5)
  - Hypovolaemia [None]
  - Gastrointestinal haemorrhage [None]
  - Immunosuppressant drug level increased [None]
  - Toxicity to various agents [None]
  - Off label use [None]
